FAERS Safety Report 19364969 (Version 1)
Quarter: 2021Q2

REPORT INFORMATION
  Report Type: Spontaneous
  Country: US (occurrence: US)
  Receive Date: 20210602
  Receipt Date: 20210602
  Transmission Date: 20210717
  Serious: No
  Sender: FDA-Public Use
  Company Number: None

PATIENT
  Age: 81 Year
  Sex: Male

DRUGS (1)
  1. OLUMIANT [Suspect]
     Active Substance: BARICITINIB
     Indication: RHEUMATOID ARTHRITIS
     Dosage: OTHER DOSE:1 TABLET;?AS DIRECTED?? INTERRUPTED
     Route: 048
     Dates: start: 202010

REACTIONS (2)
  - Hip fracture [None]
  - Fall [None]
